FAERS Safety Report 8119097-0 (Version None)
Quarter: 2012Q1

REPORT INFORMATION
  Report Type: 
  Country: None (occurrence: None)
  Receive Date: 20120207
  Receipt Date: 20120123
  Transmission Date: 20120608
  Serious: Yes (Life-Threatening)
  Sender: FDA-Public Use
  Company Number: PHHY2012SI009645

PATIENT
  Sex: Female

DRUGS (2)
  1. CARBOPLATIN [Suspect]
     Indication: OVARIAN CANCER STAGE IV
     Dosage: 750 MG, QD
     Route: 042
     Dates: start: 20120103
  2. TAXOL [Concomitant]
     Dosage: 250 MG, UNK

REACTIONS (4)
  - TACHYCARDIA [None]
  - DYSPNOEA [None]
  - HYPERTENSION [None]
  - NAUSEA [None]
